FAERS Safety Report 16356995 (Version 1)
Quarter: 2019Q2

REPORT INFORMATION
  Report Type: Spontaneous
  Country: UG (occurrence: UG)
  Receive Date: 20190527
  Receipt Date: 20190527
  Transmission Date: 20190711
  Serious: Yes (Death, Other)
  Sender: FDA-Public Use
  Company Number: UG-CIPLA LTD.-2019UG03919

PATIENT

DRUGS (4)
  1. EMTRICITABINE/TENOFOVIR [Suspect]
     Active Substance: EMTRICITABINE\TENOFOVIR
     Indication: HIV INFECTION
     Dosage: UNK, 1 TOTAL DAILY DOSE, 1 COURSE (TABS/CAPS)
     Route: 048
     Dates: start: 20130723
  2. NEVIRAPINE. [Suspect]
     Active Substance: NEVIRAPINE
     Indication: HIV INFECTION
     Dosage: UNK, 1 TOTAL DAILY DOSE, 1 COURSE (TAB/CAPS)
     Route: 048
     Dates: start: 20131121, end: 20131204
  3. NEVIRAPINE. [Suspect]
     Active Substance: NEVIRAPINE
     Dosage: UNK, 1 TOTAL DAILY DOSE, 2 COURSES (TAB/CAPS)
     Route: 048
     Dates: start: 20131205
  4. EFAVIRENZ. [Suspect]
     Active Substance: EFAVIRENZ
     Indication: HIV INFECTION
     Dosage: UNK, 1 TOTAL DAILY DOSE, 1 COURSE (TABS/CAPS)
     Route: 048
     Dates: start: 20130723, end: 20131121

REACTIONS (2)
  - Exposure during pregnancy [Unknown]
  - Death [Fatal]
